FAERS Safety Report 7396426-7 (Version None)
Quarter: 2011Q2

REPORT INFORMATION
  Report Type: 
  Country: None (occurrence: None)
  Receive Date: 20110406
  Receipt Date: 20110328
  Transmission Date: 20111010
  Serious: Yes (Death, Hospitalization)
  Sender: FDA-Public Use
  Company Number: US-MILLENNIUM PHARMACEUTICALS, INC.-2011-00916

PATIENT
  Age: 63 Year
  Sex: Male
  Weight: 125 kg

DRUGS (2)
  1. VELCADE [Suspect]
     Indication: MULTIPLE MYELOMA
     Dosage: 1.3 MG/M2, CYCLIC
     Route: 042
     Dates: start: 20100812, end: 20100923
  2. VELCADE [Suspect]
     Dosage: 3 MG/M2, CYCLIC
     Route: 042
     Dates: start: 20110225, end: 20110225

REACTIONS (12)
  - CARDIO-RESPIRATORY ARREST [None]
  - DYSPNOEA [None]
  - DEHYDRATION [None]
  - RENAL FAILURE [None]
  - NAUSEA [None]
  - ANAEMIA [None]
  - VOMITING [None]
  - FIBRIN D DIMER INCREASED [None]
  - MENTAL STATUS CHANGES [None]
  - PULMONARY HYPERTENSION [None]
  - PULMONARY OEDEMA [None]
  - DIARRHOEA [None]
